FAERS Safety Report 10444413 (Version 2)
Quarter: 2014Q3

REPORT INFORMATION
  Report Type: Report from Study
  Country: US (occurrence: US)
  Receive Date: 20140910
  Receipt Date: 20140910
  Transmission Date: 20150326
  Serious: Yes (Other)
  Sender: FDA-Public Use
  Company Number: US-US-EMD SERONO, INC.-7312949

PATIENT
  Age: 56 Year
  Sex: Female

DRUGS (1)
  1. REBIF [Suspect]
     Active Substance: INTERFERON BETA-1A
     Indication: PRODUCT USED FOR UNKNOWN INDICATION
     Route: 058
     Dates: start: 20110519, end: 201407

REACTIONS (8)
  - Vertigo positional [Not Recovered/Not Resolved]
  - Fear [Not Recovered/Not Resolved]
  - Laryngeal mass [Recovering/Resolving]
  - Hypoaesthesia [Unknown]
  - Cupulolithiasis [Unknown]
  - Rotator cuff syndrome [Recovering/Resolving]
  - Upper-airway cough syndrome [Not Recovered/Not Resolved]
  - Tonsillolith [Not Recovered/Not Resolved]

NARRATIVE: CASE EVENT DATE: 201305
